FAERS Safety Report 13191223 (Version 1)
Quarter: 2017Q1

REPORT INFORMATION
  Report Type: Spontaneous
  Country: AU (occurrence: AU)
  Receive Date: 20170207
  Receipt Date: 20170207
  Transmission Date: 20170428
  Serious: Yes (Hospitalization)
  Sender: FDA-Public Use
  Company Number: AU-SCIEGEN PHARMACEUTICALS INC-2017SCILIT00040

PATIENT
  Age: 85 Year
  Sex: Male

DRUGS (1)
  1. DONEPEZIL HYDROCHLORIDE TABLETS, USP [Suspect]
     Active Substance: DONEPEZIL HYDROCHLORIDE
     Indication: DEMENTIA
     Dosage: 5 MG, QD
     Route: 065
     Dates: start: 201409

REACTIONS (3)
  - Sexually inappropriate behaviour [Recovering/Resolving]
  - Emotional distress [Recovering/Resolving]
  - Feeling abnormal [Recovering/Resolving]
